FAERS Safety Report 5900298-4 (Version None)
Quarter: 2008Q3

REPORT INFORMATION
  Report Type: 
  Country: None (occurrence: None)
  Receive Date: 20080926
  Receipt Date: 20080922
  Transmission Date: 20090109
  Serious: Yes (Other)
  Sender: FDA-Public Use
  Company Number: PHHY2008JP21981

PATIENT
  Age: 59 Year
  Sex: Male

DRUGS (4)
  1. DIOVAN [Suspect]
     Indication: HYPERTENSION
     Dosage: 80 MG, ONCE/SINGLE
     Route: 048
     Dates: start: 20040424
  2. RENIVACE [Suspect]
     Dosage: 2.5 MG, UNK
     Route: 048
     Dates: start: 20040424
  3. NORVASC [Suspect]
     Dosage: 5 MG, UNK
     Route: 048
     Dates: start: 20040424
  4. FLUITRAN [Suspect]
     Dosage: 2 MG, UNK
     Route: 048
     Dates: start: 20040424

REACTIONS (1)
  - BLOOD CREATINE PHOSPHOKINASE INCREASED [None]
